FAERS Safety Report 7114812-7 (Version None)
Quarter: 2010Q4

REPORT INFORMATION
  Report Type: 
  Country: None (occurrence: None)
  Receive Date: 20101122
  Receipt Date: 20101110
  Transmission Date: 20110411
  Serious: No
  Sender: FDA-Public Use
  Company Number: US-BIOGENIDEC-2010BI039880

PATIENT
  Sex: Female

DRUGS (2)
  1. TYSABRI [Suspect]
     Indication: MULTIPLE SCLEROSIS
     Route: 042
     Dates: start: 20080707
  2. STEROIDS [NOS] [Concomitant]
     Indication: BURNING SENSATION

REACTIONS (5)
  - ANKLE FRACTURE [None]
  - DECUBITUS ULCER [None]
  - FALL [None]
  - HYPOAESTHESIA [None]
  - PROCEDURAL PAIN [None]
